FAERS Safety Report 5672238-7 (Version None)
Quarter: 2008Q1

REPORT INFORMATION
  Report Type: 
  Country: None (occurrence: None)
  Receive Date: 20080319
  Receipt Date: 20080310
  Transmission Date: 20080703
  Serious: Yes (Other)
  Sender: FDA-Public Use
  Company Number: BR-WYE-H03020108

PATIENT
  Sex: Male
  Weight: 54 kg

DRUGS (2)
  1. PREMARIN [Suspect]
     Dosage: 0.625MG
     Route: 048
     Dates: end: 20070901
  2. PREMARIN [Suspect]
     Dosage: 0.625MG
     Route: 048

REACTIONS (2)
  - GYNAECOMASTIA [None]
  - TUBERCULOSIS [None]
